FAERS Safety Report 9538852 (Version 1)
Quarter: 2013Q2

REPORT INFORMATION
  Report Type: Spontaneous
  Country: US (occurrence: None)
  Receive Date: 20130517
  Receipt Date: 20130517
  Transmission Date: 20140414
  Serious: Yes (Hospitalization)
  Sender: FDA-Public Use
  Company Number: 2012PL000170

PATIENT
  Age: 24 Year
  Sex: Female
  Weight: 86.18 kg

DRUGS (6)
  1. IMURAN (AZATHIOPRINE) [Suspect]
     Indication: CROHN^S DISEASE
     Route: 058
     Dates: start: 20120621, end: 20120719
  2. HUMIRA [Suspect]
  3. PROTONIX [Concomitant]
  4. QUESTRAN [Concomitant]
  5. IRON [Concomitant]
  6. CYANOCOBALAMIN [Concomitant]

REACTIONS (9)
  - Rectal abscess [None]
  - Fistula [None]
  - Crohn^s disease [None]
  - Malaise [None]
  - Aphthous stomatitis [None]
  - Pyrexia [None]
  - Diarrhoea [None]
  - Headache [None]
  - Fatigue [None]
